FAERS Safety Report 7737835-3 (Version None)
Quarter: 2011Q3

REPORT INFORMATION
  Report Type: 
  Country: None (occurrence: None)
  Receive Date: 20110908
  Receipt Date: 20110902
  Transmission Date: 20111222
  Serious: Yes (Disabling, Other)
  Sender: FDA-Public Use
  Company Number: PHHY2011CH67732

PATIENT
  Age: 63 Year
  Sex: Male

DRUGS (5)
  1. CIPROFLOXACIN [Concomitant]
     Dosage: 1.5 MG, DAILY
     Route: 065
  2. SUTENT [Interacting]
     Dosage: 50 MG, UNK
     Route: 048
     Dates: start: 20100406, end: 20101105
  3. ZOMETA [Suspect]
     Indication: BONE DISORDER
     Dosage: 4 MG, QMO
     Route: 042
     Dates: start: 20091201
  4. SUTENT [Interacting]
     Dosage: 37. MG, UNK
     Route: 048
     Dates: start: 20110324
  5. ZOMETA [Interacting]
     Dosage: 4 MG, QMO
     Route: 042
     Dates: start: 20100101

REACTIONS (2)
  - DRUG INTERACTION [None]
  - OSTEONECROSIS OF JAW [None]
